FAERS Safety Report 21604651 (Version 1)
Quarter: 2022Q4

REPORT INFORMATION
  Report Type: Spontaneous
  Country: IT (occurrence: IT)
  Receive Date: 20221116
  Receipt Date: 20221116
  Transmission Date: 20230113
  Serious: Yes (Other)
  Sender: FDA-Public Use
  Company Number: None

PATIENT
  Age: 58 Year
  Sex: Female
  Weight: 78 kg

DRUGS (5)
  1. PACLITAXEL [Suspect]
     Active Substance: PACLITAXEL
     Indication: Breast cancer
     Dosage: WEEKLY RECRUITMENT, DURATION: 208 DAYS
     Route: 065
     Dates: start: 20220401, end: 20221026
  2. FAMOTIDINE [Concomitant]
     Active Substance: FAMOTIDINE
     Indication: Ulcer
     Dosage: 20MG FOR 20 MINUTES, UNIT DOSE: 20 MG, FREQUENCY TIME : 20 MINUTES, DURATION: 208 DAYS
     Dates: start: 20220401, end: 20221026
  3. TRIMETON [Concomitant]
     Active Substance: CHLORPHENIRAMINE MALEATE
     Indication: Vomiting
     Dosage: 10MG FOR 15 MINUTES, FREQUENCY TIME : 15 MINUTES, UNIT DOSE: 10 MG, DURATION: 208 DAYS
     Dates: start: 20220401, end: 20221026
  4. DEXAMETHASONE [Concomitant]
     Active Substance: DEXAMETHASONE
     Indication: Hypercalcaemia of malignancy
     Dosage: 8MG FOR 15 MINUTES, FREQUENCY TIME : 15 MINUTES, DURATION: 208 DAYS, UNIT DOSE: 8 MG
     Dates: start: 20220401, end: 20221026
  5. ONDANSETRON [Concomitant]
     Active Substance: ONDANSETRON
     Indication: Nausea
     Dosage: 8MG FOR 15 MINUTES, FREQUENCY TIME: 15 MINUTES, DURATION: 208 DAYS, UNIT DOSE: 8 MG
     Dates: start: 20220401, end: 20221026

REACTIONS (7)
  - Lymphopenia [Recovering/Resolving]
  - Nausea [Recovering/Resolving]
  - Pain of skin [Recovering/Resolving]
  - Hypoaesthesia [Recovering/Resolving]
  - Asthenia [Recovering/Resolving]
  - Aphthous ulcer [Recovering/Resolving]
  - Dry mouth [Recovering/Resolving]

NARRATIVE: CASE EVENT DATE: 20220401
